FAERS Safety Report 8773859 (Version 1)
Quarter: 2012Q4

REPORT INFORMATION
  Report Type: 
  Country: FR (occurrence: FR)
  Receive Date: 20120907
  Receipt Date: 20120907
  Transmission Date: 20130627
  Serious: Yes (Other)
  Sender: FDA-Public Use
  Company Number: FR-ROCHE-1095717

PATIENT
  Sex: Male

DRUGS (5)
  1. PEGASYS [Suspect]
     Indication: HEPATITIS C
     Route: 058
     Dates: start: 201201
  2. COPEGUS [Suspect]
     Indication: HEPATITIS C
     Route: 065
     Dates: start: 201201
  3. ATENOLOL [Concomitant]
     Route: 065
     Dates: start: 2007
  4. METHADONE [Concomitant]
     Route: 065
     Dates: start: 1970
  5. NEORECORMON [Concomitant]

REACTIONS (2)
  - Prurigo [Not Recovered/Not Resolved]
  - Excoriation [Not Recovered/Not Resolved]
